FAERS Safety Report 21324986 (Version 1)
Quarter: 2022Q3

REPORT INFORMATION
  Report Type: Spontaneous
  Country: NL (occurrence: NL)
  Receive Date: 20220912
  Receipt Date: 20220912
  Transmission Date: 20221027
  Serious: Yes (Life-Threatening)
  Sender: FDA-Public Use
  Company Number: None

PATIENT

DRUGS (2)
  1. PROGESTERONE [Suspect]
     Active Substance: PROGESTERONE
     Indication: Product used for unknown indication
     Dosage: 1 TABLET PER DAY
     Route: 065
     Dates: end: 20201224
  2. PROGESTERONE [Suspect]
     Active Substance: PROGESTERONE
     Dosage: 2 TABLETS PER DAY
     Route: 065
     Dates: start: 20201220

REACTIONS (3)
  - Suicidal ideation [Recovered/Resolved]
  - Dizziness [Recovered/Resolved]
  - Depressed mood [Recovered/Resolved]
